FAERS Safety Report 13423708 (Version 4)
Quarter: 2022Q3

REPORT INFORMATION
  Report Type: Report from Study
  Country: US (occurrence: US)
  Receive Date: 20170410
  Receipt Date: 20220914
  Transmission Date: 20221027
  Serious: Yes (Other)
  Sender: FDA-Public Use
  Company Number: US-JNJFOC-20170403359

PATIENT
  Age: 52 Year
  Sex: Male

DRUGS (11)
  1. IMBRUVICA [Suspect]
     Active Substance: IBRUTINIB
     Indication: Waldenstrom^s macroglobulinaemia
     Dosage: 420 MG, QD
     Route: 048
  2. IMBRUVICA [Suspect]
     Active Substance: IBRUTINIB
     Dosage: UNKNOWN
     Route: 048
  3. IMBRUVICA [Suspect]
     Active Substance: IBRUTINIB
     Indication: Waldenstrom^s macroglobulinaemia
     Route: 048
     Dates: start: 2016
  4. IMBRUVICA [Suspect]
     Active Substance: IBRUTINIB
     Dosage: LOWER DOSE
     Route: 048
     Dates: start: 2017
  5. SUDAFED [Suspect]
     Active Substance: PSEUDOEPHEDRINE HYDROCHLORIDE
     Indication: Nasopharyngitis
     Dosage: UNK
     Route: 065
     Dates: end: 20170329
  6. VICKS NYQUIL [Concomitant]
     Active Substance: ACETAMINOPHEN\DEXTROMETHORPHAN HYDROBROMIDE\DOXYLAMINE SUCCINATE
     Indication: Product used for unknown indication
  7. ACRIVASTINE [Concomitant]
     Active Substance: ACRIVASTINE
     Indication: Product used for unknown indication
  8. CLARITHROMYCIN [Concomitant]
     Active Substance: CLARITHROMYCIN
     Indication: Product used for unknown indication
  9. MODERNA COVID-19 VACCINE [Concomitant]
     Active Substance: ELASOMERAN
     Indication: COVID-19 immunisation
     Dosage: 1ST DOSE
     Route: 030
     Dates: start: 20210302, end: 20210302
  10. MODERNA COVID-19 VACCINE [Concomitant]
     Active Substance: ELASOMERAN
     Dosage: 2ND DOSE
     Route: 030
     Dates: start: 20210330, end: 20210330
  11. MODERNA COVID-19 VACCINE [Concomitant]
     Active Substance: ELASOMERAN
     Dosage: 3RD DOSE/BOOSTER DOSE
     Route: 030
     Dates: start: 20210818, end: 20210818

REACTIONS (6)
  - Heart rate irregular [Not Recovered/Not Resolved]
  - Arrhythmia [Unknown]
  - Liver function test abnormal [Recovering/Resolving]
  - Nasopharyngitis [Not Recovered/Not Resolved]
  - Onychoclasis [Not Recovered/Not Resolved]
  - Atrial fibrillation [Recovering/Resolving]

NARRATIVE: CASE EVENT DATE: 20160101
